FAERS Safety Report 7146741-7 (Version None)
Quarter: 2010Q4

REPORT INFORMATION
  Report Type: 
  Country: None (occurrence: None)
  Receive Date: 20101208
  Receipt Date: 20101201
  Transmission Date: 20110411
  Serious: Yes (Hospitalization)
  Sender: FDA-Public Use
  Company Number: US-GENENTECH-307385

PATIENT
  Sex: Female
  Weight: 83.6 kg

DRUGS (1)
  1. RITUXIMAB [Suspect]
     Indication: NON-HODGKIN'S LYMPHOMA
     Dosage: 730 MG, UNK
     Route: 042
     Dates: start: 20100810

REACTIONS (1)
  - ANAEMIA [None]
